FAERS Safety Report 24246712 (Version 2)
Quarter: 2024Q4

REPORT INFORMATION
  Report Type: Spontaneous
  Country: JP (occurrence: JP)
  Receive Date: 20240825
  Receipt Date: 20241025
  Transmission Date: 20250115
  Serious: Yes (Death, Other)
  Sender: TAKEDA
  Company Number: JP-TAKEDA-2024TJP012403

PATIENT
  Age: 61 Year
  Sex: Female
  Weight: 85 kg

DRUGS (4)
  1. TRINTELLIX [Suspect]
     Active Substance: VORTIOXETINE HYDROBROMIDE
     Indication: Depression
     Dosage: 5 MILLIGRAM, QD
     Route: 048
     Dates: start: 20240705
  2. LATUDA [Concomitant]
     Active Substance: LURASIDONE HYDROCHLORIDE
     Dosage: 40 MILLIGRAM, QD
     Route: 048
     Dates: start: 20230922
  3. FLUNITRAZEPAM [Concomitant]
     Active Substance: FLUNITRAZEPAM
     Dosage: 2 MILLIGRAM, QD
     Route: 048
     Dates: start: 20240217
  4. BROTIZOLAM [Concomitant]
     Active Substance: BROTIZOLAM
     Dosage: 25 MILLIGRAM, QD
     Route: 048
     Dates: start: 20240802

REACTIONS (3)
  - Completed suicide [Fatal]
  - Hyperhidrosis [Unknown]
  - Underdose [Unknown]

NARRATIVE: CASE EVENT DATE: 20240705
